FAERS Safety Report 7831228-6 (Version None)
Quarter: 2011Q4

REPORT INFORMATION
  Report Type: 
  Country: None (occurrence: None)
  Receive Date: 20111021
  Receipt Date: 20111020
  Transmission Date: 20120403
  Serious: Yes (Hospitalization, Other)
  Sender: FDA-Public Use
  Company Number: CA-ROCHE-1005914

PATIENT
  Sex: Female

DRUGS (4)
  1. SINGULAIR [Concomitant]
  2. SYMBICORT [Concomitant]
  3. PREDNISONE [Concomitant]
  4. XOLAIR [Suspect]
     Indication: ASTHMA
     Route: 058
     Dates: start: 20110606

REACTIONS (1)
  - ASTHMA [None]
